FAERS Safety Report 4616080-4 (Version None)
Quarter: 2005Q1

REPORT INFORMATION
  Report Type: 
  Country: None (occurrence: None)
  Receive Date: 20050321
  Receipt Date: 20050314
  Transmission Date: 20050727
  Serious: Yes (Death, Life-Threatening, Hospitalization, Other)
  Sender: FDA-Public Use
  Company Number: 2004-12-0208

PATIENT
  Age: 51 Year
  Sex: Female
  Weight: 55 kg

DRUGS (7)
  1. PEG-INTERFERON ALFA-2B INJECTABLE POWDER [Suspect]
     Indication: HEPATITIS C
     Dosage: 80 MCG SUBCUTANEOUS
     Route: 058
     Dates: start: 20041022, end: 20041119
  2. RIBAVIRIN [Suspect]
     Indication: HEPATITIS C
     Dosage: 800 MG ORAL
     Route: 048
     Dates: start: 20041022, end: 20041119
  3. SPIRONOLACTONE [Concomitant]
  4. LORAZEPAM [Concomitant]
  5. CORTISONE [Concomitant]
  6. SALBUTAMOL (ALBUTEROL) [Concomitant]
  7. THIAMIN [Concomitant]

REACTIONS (15)
  - ANAEMIA [None]
  - CARDIAC MURMUR [None]
  - ENDOCARDITIS [None]
  - GLOMERULONEPHRITIS [None]
  - HYPOTENSION [None]
  - INJECTION SITE PAIN [None]
  - MENINGITIS [None]
  - PAIN [None]
  - PSORIASIS [None]
  - PYREXIA [None]
  - RENAL FAILURE [None]
  - RESPIRATORY FAILURE [None]
  - SINUS TACHYCARDIA [None]
  - STAPHYLOCOCCAL SEPSIS [None]
  - THIRST [None]
